FAERS Safety Report 9441773 (Version 2)
Quarter: 2013Q4

REPORT INFORMATION
  Report Type: Report from Study
  Country: DE (occurrence: DE)
  Receive Date: 20130806
  Receipt Date: 20131112
  Transmission Date: 20140711
  Serious: Yes (Other)
  Sender: FDA-Public Use
  Company Number: DE-ROCHE-1257427

PATIENT
  Age: 50 Year
  Sex: Male
  Weight: 83 kg

DRUGS (9)
  1. TOCILIZUMAB [Suspect]
     Indication: RHEUMATOID ARTHRITIS
     Route: 042
     Dates: start: 20120502, end: 20120604
  2. PREDNISOLON [Concomitant]
     Route: 065
     Dates: start: 20120101
  3. ARAVA [Concomitant]
     Route: 065
     Dates: start: 20051001
  4. DICLOFENAC [Concomitant]
     Route: 065
     Dates: start: 20051001
  5. OMEPRAZOL [Concomitant]
     Route: 065
     Dates: start: 20120111
  6. RAMIPRIL [Concomitant]
     Route: 065
     Dates: start: 20120328
  7. ASS100 [Concomitant]
     Route: 048
     Dates: start: 20120620
  8. BISOPROLOL [Concomitant]
     Route: 048
     Dates: start: 20120623
  9. CLOPIDOGREL [Concomitant]
     Dosage: ONLY ONCE
     Route: 048
     Dates: start: 20120621, end: 20120621

REACTIONS (4)
  - Acute myocardial infarction [Recovered/Resolved]
  - Staphylococcal infection [Recovered/Resolved]
  - Impaired healing [Recovered/Resolved]
  - Coronary artery disease [Recovered/Resolved]
